FAERS Safety Report 7793432-5 (Version None)
Quarter: 2011Q4

REPORT INFORMATION
  Report Type: 
  Country: None (occurrence: None)
  Receive Date: 20111003
  Receipt Date: 20110923
  Transmission Date: 20120403
  Serious: Yes (Other)
  Sender: FDA-Public Use
  Company Number: PHHY2011GB85033

PATIENT
  Sex: Female

DRUGS (8)
  1. PROPRANOLOL [Concomitant]
  2. HUMIRA [Suspect]
     Indication: RHEUMATOID ARTHRITIS
  3. METHOTREXATE [Suspect]
     Route: 058
  4. METHOTREXATE [Suspect]
     Route: 048
  5. INDOMETHACIN [Concomitant]
     Dosage: 75 MG, BID
  6. DIHYDROCODEINE BITARTRATE INJ [Concomitant]
  7. PREDNISOLONE [Concomitant]
  8. PROPYLTHIOURACIL [Concomitant]

REACTIONS (6)
  - HYPERTHYROIDISM [None]
  - JOINT SWELLING [None]
  - ARTHRALGIA [None]
  - MUSCULOSKELETAL DISCOMFORT [None]
  - VOMITING [None]
  - NAUSEA [None]
